FAERS Safety Report 6751752-7 (Version None)
Quarter: 2010Q2

REPORT INFORMATION
  Report Type: 
  Country: None (occurrence: None)
  Receive Date: 20100602
  Receipt Date: 20100520
  Transmission Date: 20101027
  Serious: Yes (Hospitalization)
  Sender: FDA-Public Use
  Company Number: PHHY2010NZ33128

PATIENT
  Sex: Female
  Weight: 50 kg

DRUGS (3)
  1. GLEEVEC [Suspect]
     Indication: ACUTE LYMPHOCYTIC LEUKAEMIA
     Dosage: 600 MG, UNK
  2. GLEEVEC [Interacting]
     Dosage: 400 MG/DAY
  3. VINCRISTINE [Interacting]
     Indication: ACUTE LYMPHOCYTIC LEUKAEMIA
     Dosage: (AT HALF THE USUAL ADULT DOSE - 2MG

REACTIONS (5)
  - CONSTIPATION [None]
  - DRUG INTERACTION [None]
  - ILEUS PARALYTIC [None]
  - TRANSPLANT [None]
  - VOMITING [None]
